FAERS Safety Report 9409950 (Version 2)
Quarter: 2013Q3

REPORT INFORMATION
  Report Type: Report from Study
  Country: US (occurrence: US)
  Receive Date: 20130719
  Receipt Date: 20130726
  Transmission Date: 20140515
  Serious: Yes (Hospitalization)
  Sender: FDA-Public Use
  Company Number: US-JNJFOC-20130709057

PATIENT
  Age: 16 Year
  Sex: Female
  Weight: 61.8 kg

DRUGS (6)
  1. REMICADE [Suspect]
     Indication: COLITIS ULCERATIVE
     Route: 042
     Dates: start: 20120626
  2. AZATHIOPRINE [Concomitant]
     Route: 065
  3. OMEPRAZOLE [Concomitant]
     Route: 065
  4. LEVSIN [Concomitant]
     Route: 065
  5. CELEXA [Concomitant]
     Route: 065
  6. INSULIN [Concomitant]
     Route: 065

REACTIONS (1)
  - Colitis ulcerative [Recovered/Resolved]
